FAERS Safety Report 7527335-8 (Version None)
Quarter: 2011Q2

REPORT INFORMATION
  Report Type: 
  Country: None (occurrence: None)
  Receive Date: 20110607
  Receipt Date: 20090924
  Transmission Date: 20111010
  Serious: Yes (Hospitalization, Other)
  Sender: FDA-Public Use
  Company Number: US-BAYER-200933826NA

PATIENT
  Age: 82 Year
  Sex: Male
  Weight: 68 kg

DRUGS (30)
  1. ASPIRIN [Concomitant]
     Dosage: 81 MG, QD
     Route: 048
  2. LISINOPRIL [Concomitant]
     Route: 048
  3. PLATELETS [Concomitant]
     Dosage: 20 U, ONCE
     Route: 042
     Dates: start: 20050824
  4. PROTAMINE SULFATE [Concomitant]
     Dosage: UNK
     Route: 042
     Dates: start: 20050824, end: 20050824
  5. VERSED [Concomitant]
     Dosage: UNK
     Route: 042
     Dates: start: 20050824, end: 20050824
  6. CEFAZOLIN [Concomitant]
     Dosage: 1 GM, UNK
     Route: 042
     Dates: start: 20050824
  7. PROPOFOL [Concomitant]
     Dosage: UNK
     Route: 042
     Dates: start: 20050824, end: 20050824
  8. ISOLYTE [Concomitant]
     Indication: CARDIOPULMONARY BYPASS
     Dosage: 1.2 LITER/PRIME, UNK
     Dates: start: 20050824
  9. ALBUMIN (HUMAN) [Concomitant]
     Indication: CARDIOPULMONARY BYPASS
     Dosage: 25 GM/PRIME, UNK
     Dates: start: 20050824
  10. CALCIUM CHLORIDE [Concomitant]
     Indication: CARDIOPULMONARY BYPASS
     Dosage: 0.5 GM/PRIME, UNK
     Dates: start: 20050824
  11. TRASYLOL [Suspect]
     Indication: COX-MAZE PROCEDURE
  12. MANNITOL [Concomitant]
     Indication: CARDIOPULMONARY BYPASS
     Dosage: 12.5 GM/PRIME, UNK
     Dates: start: 20050824
  13. TRASYLOL [Suspect]
     Indication: CORONARY ARTERY BYPASS
     Dosage: 200 ML, ONCE, LOADING DOSE
     Dates: start: 20050824, end: 20050824
  14. NAPROXEN (ALEVE) [Concomitant]
     Indication: PAIN
     Route: 048
  15. VANCOMYCIN [Concomitant]
     Dosage: 1 GM, UNK
     Route: 042
     Dates: start: 20050824
  16. AMIODARONE HCL [Concomitant]
     Dosage: UNK
     Route: 042
     Dates: start: 20050824
  17. SODIUM BICARBONATE [Concomitant]
     Indication: CARDIOPULMONARY BYPASS
     Dosage: 50 MQ/PRIME, UNK
     Dates: start: 20050824
  18. TRASYLOL [Suspect]
     Indication: MITRAL VALVE REPAIR
     Dosage: 50 ML/HR INFUSION
     Route: 042
     Dates: start: 20050824, end: 20050824
  19. APROTININ [Concomitant]
     Dosage: 50 ML/HR, UNK
     Route: 042
     Dates: start: 20050824, end: 20050824
  20. FENTANYL [Concomitant]
     Dosage: UNK
     Route: 042
     Dates: start: 20050824, end: 20050824
  21. ZINACEF [Concomitant]
     Dosage: 1.5 GM, UNK
     Route: 042
     Dates: start: 20050824
  22. RED BLOOD CELLS [Concomitant]
     Dosage: 3 U, ONCE
     Route: 042
     Dates: start: 20050824
  23. APROTININ [Concomitant]
     Dosage: 200 ML/PRIME, UNK
     Route: 042
     Dates: start: 20050824, end: 20050824
  24. LEVOPHED [Concomitant]
     Dosage: UNK
     Route: 042
     Dates: start: 20050824
  25. DOBUTAMINE HYDROCHLORIDE [Concomitant]
     Dosage: UNK
     Route: 042
     Dates: start: 20050824
  26. EPINEPHRINE [Concomitant]
     Dosage: 200 MG, UNK
     Route: 042
     Dates: start: 20050824
  27. PAPAVERINE [Concomitant]
     Dosage: UNK
     Route: 042
     Dates: start: 20050824, end: 20050824
  28. HEPARIN [Concomitant]
     Dosage: UNK
     Route: 042
     Dates: start: 20050824
  29. LIDOCAINE [Concomitant]
     Dosage: 100 MG, UNK
     Route: 042
     Dates: start: 20050824
  30. PLASMA [Concomitant]
     Dosage: 2 U, ONCE
     Route: 042
     Dates: start: 20050824

REACTIONS (12)
  - RENAL INJURY [None]
  - FEAR [None]
  - ANXIETY [None]
  - RENAL FAILURE [None]
  - INJURY [None]
  - ANHEDONIA [None]
  - MULTI-ORGAN FAILURE [None]
  - RENAL IMPAIRMENT [None]
  - PAIN [None]
  - EMOTIONAL DISTRESS [None]
  - STRESS [None]
  - UNEVALUABLE EVENT [None]
